FAERS Safety Report 18278811 (Version 1)
Quarter: 2020Q3

REPORT INFORMATION
  Report Type: Spontaneous
  Country: IN (occurrence: IN)
  Receive Date: 20200917
  Receipt Date: 20200917
  Transmission Date: 20201103
  Serious: Yes (Death, Other)
  Sender: FDA-Public Use
  Company Number: IN-SGP-000008

PATIENT
  Age: 59 Year

DRUGS (1)
  1. METHYLPREDNISOLONE. [Suspect]
     Active Substance: METHYLPREDNISOLONE
     Indication: MYELITIS TRANSVERSE
     Dosage: 1 G/DAY
     Route: 065

REACTIONS (4)
  - Product use in unapproved indication [Unknown]
  - COVID-19 [Unknown]
  - Respiratory failure [Unknown]
  - Cardiac arrest [Fatal]
